FAERS Safety Report 8373429 (Version 2)
Quarter: 2013Q1

REPORT INFORMATION
  Report Type: Report from Study
  Country: PR (occurrence: PR)
  Receive Date: 20120128
  Receipt Date: 20130129
  Transmission Date: 20140127
  Serious: No
  Sender: FDA-Public Use
  Company Number: PR-ABBOTT-11P-131-0866959-00

PATIENT
  Sex: Male
  Weight: 55.84 kg

DRUGS (4)
  1. HUMIRA 40 MG/ 0.8 ML PRE-FILLED SYRINGE [Suspect]
     Indication: CROHN^S DISEASE
     Route: 058
     Dates: start: 2008
  2. XALATAN [Concomitant]
     Indication: GLAUCOMA
     Dosage: 1 DROP ON BOTH EYES AT BEDTIME
     Route: 047
     Dates: start: 2002
  3. ALPHAGAN [Concomitant]
     Indication: GLAUCOMA
     Dosage: 1 DROP ON BOTH EYES BID
     Route: 047
     Dates: start: 2002
  4. XANAX [Concomitant]
     Indication: ANXIETY
     Dosage: 1 TABLET AT BEDTIME
     Route: 048

REACTIONS (1)
  - Psoriasis [Recovering/Resolving]
